FAERS Safety Report 12965228 (Version 1)
Quarter: 2016Q4

REPORT INFORMATION
  Report Type: Spontaneous
  Country: US (occurrence: US)
  Receive Date: 20161122
  Receipt Date: 20161122
  Transmission Date: 20170207
  Serious: No
  Sender: FDA-Public Use
  Company Number: US-PERNIX THERAPEUTICS-2016PT000181

PATIENT

DRUGS (4)
  1. ZOHYDRO [Suspect]
     Active Substance: HYDROCODONE BITARTRATE
     Indication: PAIN
     Dosage: 20 MG, TWICE DAILY
     Route: 048
     Dates: start: 201607, end: 201608
  2. ZOHYDRO [Suspect]
     Active Substance: HYDROCODONE BITARTRATE
     Dosage: 30 MG, TWICE DAILY
     Route: 048
     Dates: start: 201608
  3. CARBAMAZEPINE. [Suspect]
     Active Substance: CARBAMAZEPINE
     Indication: NEUROPATHY PERIPHERAL
     Dosage: 200 MG, TWICE DAILY
     Route: 065
  4. CARBAMAZEPINE. [Suspect]
     Active Substance: CARBAMAZEPINE
     Dosage: 100 MG, TWICE DAILY
     Route: 065

REACTIONS (2)
  - Drug interaction [Unknown]
  - Drug ineffective [Recovering/Resolving]

NARRATIVE: CASE EVENT DATE: 201607
